FAERS Safety Report 23570133 (Version 1)
Quarter: 2024Q1

REPORT INFORMATION
  Report Type: Spontaneous
  Country: US (occurrence: None)
  Receive Date: 20240226
  Receipt Date: 20240226
  Transmission Date: 20240409
  Serious: Yes (Death)
  Sender: FDA-Public Use
  Company Number: None

PATIENT
  Age: 18 Year
  Sex: Female
  Weight: 64.6 kg

DRUGS (12)
  1. CYCLOSPORINE [Suspect]
     Active Substance: CYCLOSPORINE
     Dosage: FREQUENCY : TWICE A DAY;?
     Route: 048
  2. Fluocinolone 0.01% Cream [Concomitant]
  3. Magnesium Plus Protein 133mg tablets [Concomitant]
  4. Vitamin D3 50,000 unit capsules [Concomitant]
  5. Cresemba 186mg capsules [Concomitant]
  6. MUPIROCIN [Concomitant]
     Active Substance: MUPIROCIN
  7. Ursodiol 300mg capsules [Concomitant]
  8. TACROLIMUS [Concomitant]
     Active Substance: TACROLIMUS
  9. SCOPOLAMINE TRANDERMAL SYSTEM [Concomitant]
     Active Substance: SCOPOLAMINE
  10. Prevymis 240mg tablets [Concomitant]
  11. Ondansetron ODT 8mg tablets [Concomitant]
  12. Acyclovir 400mg tablets [Concomitant]

REACTIONS (2)
  - Inflammation [None]
  - Bone marrow transplant [None]

NARRATIVE: CASE EVENT DATE: 20240225
